FAERS Safety Report 19268366 (Version 1)
Quarter: 2021Q2

REPORT INFORMATION
  Report Type: Spontaneous
  Country: US (occurrence: US)
  Receive Date: 20210517
  Receipt Date: 20210517
  Transmission Date: 20210717
  Serious: Yes (Life-Threatening)
  Sender: FDA-Public Use
  Company Number: None

PATIENT
  Age: 59 Year
  Sex: Male
  Weight: 132.75 kg

DRUGS (2)
  1. ORBACTIV [Suspect]
     Active Substance: ORITAVANCIN
     Indication: CELLULITIS
     Dosage: ?          OTHER FREQUENCY:ONE TIME TREATMENT;?
     Route: 042
     Dates: start: 20210517, end: 20210517
  2. ORBACTIV [Concomitant]
     Active Substance: ORITAVANCIN
     Dates: start: 20210517, end: 20210517

REACTIONS (4)
  - Pharyngeal disorder [None]
  - Headache [None]
  - Infusion related reaction [None]
  - Chest discomfort [None]

NARRATIVE: CASE EVENT DATE: 20210517
